FAERS Safety Report 12439122 (Version 1)
Quarter: 2016Q2

REPORT INFORMATION
  Report Type: Spontaneous
  Country: US (occurrence: US)
  Receive Date: 20160606
  Receipt Date: 20160606
  Transmission Date: 20160815
  Serious: No
  Sender: FDA-Public Use
  Company Number: US-PFIZER INC-2016261002

PATIENT
  Age: 71 Year
  Sex: Female

DRUGS (1)
  1. IBRANCE [Suspect]
     Active Substance: PALBOCICLIB
     Indication: BREAST CANCER FEMALE
     Dosage: 125 MG, CYCLIC
     Route: 048
     Dates: start: 20151218

REACTIONS (9)
  - Dyspnoea [Unknown]
  - Chest discomfort [Unknown]
  - Abdominal distension [Unknown]
  - Dry throat [Unknown]
  - Weight increased [Unknown]
  - Cough [Unknown]
  - Drug dose omission [Unknown]
  - Increased viscosity of upper respiratory secretion [Unknown]
  - Chronic obstructive pulmonary disease [Unknown]

NARRATIVE: CASE EVENT DATE: 20160502
